FAERS Safety Report 5251277-4 (Version None)
Quarter: 2007Q1

REPORT INFORMATION
  Report Type: 
  Country: None (occurrence: None)
  Receive Date: 20070228
  Receipt Date: 20061221
  Transmission Date: 20070707
  Serious: Yes (Hospitalization)
  Sender: FDA-Public Use
  Company Number: US-GLAXOSMITHKLINE-A0632481A

PATIENT
  Age: 17 Year
  Sex: Male

DRUGS (5)
  1. LAMICTAL [Suspect]
     Indication: BIPOLAR DISORDER
     Dosage: 75MG TWICE PER DAY
     Route: 048
  2. ALCOHOL [Suspect]
     Route: 048
  3. COCAINE [Suspect]
     Route: 065
  4. ECSTASY [Suspect]
  5. RISPERDAL [Concomitant]

REACTIONS (1)
  - DRUG ADMINISTRATION ERROR [None]
